FAERS Safety Report 8143399-5 (Version None)
Quarter: 2012Q1

REPORT INFORMATION
  Report Type: 
  Country: None (occurrence: None)
  Receive Date: 20120217
  Receipt Date: 20120202
  Transmission Date: 20120608
  Serious: Yes (Death)
  Sender: FDA-Public Use
  Company Number: IT-CELGENEUS-083-21880-12020450

PATIENT
  Age: 64 Year
  Sex: Male

DRUGS (3)
  1. DEXAMETHASONE [Concomitant]
     Route: 065
  2. BORTEZOMIB [Concomitant]
     Route: 041
  3. REVLIMID [Suspect]
     Route: 048

REACTIONS (3)
  - PNEUMONIA [None]
  - NEUTROPENIA [None]
  - LEUKAEMIA PLASMACYTIC [None]
